FAERS Safety Report 21440033 (Version 1)
Quarter: 2022Q4

REPORT INFORMATION
  Report Type: Spontaneous
  Country: SA (occurrence: None)
  Receive Date: 20221009
  Receipt Date: 20221009
  Transmission Date: 20230113
  Serious: Yes (Other)
  Sender: FDA-Public Use
  Company Number: None

PATIENT
  Age: 34 Year
  Sex: Male
  Weight: 75 kg

DRUGS (1)
  1. INVEGA [Suspect]
     Active Substance: PALIPERIDONE

REACTIONS (5)
  - Movement disorder [None]
  - Muscle contractions involuntary [None]
  - Tongue movement disturbance [None]
  - Muscle spasms [None]
  - Stereotypy [None]
